FAERS Safety Report 18419447 (Version 4)
Quarter: 2020Q4

REPORT INFORMATION
  Report Type: Spontaneous
  Country: US (occurrence: US)
  Receive Date: 20201023
  Receipt Date: 20201205
  Transmission Date: 20210114
  Serious: Yes (Other)
  Sender: FDA-Public Use
  Company Number: US-AUROBINDO-AUR-APL-2020-053148

PATIENT
  Age: 80 Year
  Sex: Female

DRUGS (4)
  1. CARVEDILOL TABLETS 12.5 MG [Suspect]
     Active Substance: CARVEDILOL
     Dosage: UNK
     Route: 065
     Dates: start: 20200624
  2. CARVEDILOL TABLETS 12.5 MG [Suspect]
     Active Substance: CARVEDILOL
     Dosage: 2 DOSAGE FORM, TWO TIMES A DAY
     Route: 065
     Dates: start: 20200828
  3. CARVEDILOL TABLETS 12.5 MG [Suspect]
     Active Substance: CARVEDILOL
     Indication: BLOOD PRESSURE MEASUREMENT
     Dosage: 2 DOSAGE FORM, TWO TIMES A DAY
     Route: 065
     Dates: start: 202005
  4. LISINOPRIL. [Concomitant]
     Active Substance: LISINOPRIL
     Indication: PRODUCT USED FOR UNKNOWN INDICATION
     Dosage: UNK
     Route: 065

REACTIONS (1)
  - Drug ineffective [Unknown]
